FAERS Safety Report 4851683-3 (Version None)
Quarter: 2005Q4

REPORT INFORMATION
  Report Type: 
  Country: None (occurrence: None)
  Receive Date: 20051209
  Receipt Date: 20051209
  Transmission Date: 20060501
  Serious: Yes (Life-Threatening, Hospitalization)
  Sender: FDA-Public Use
  Company Number: None

PATIENT
  Age: 69 Year
  Sex: Male
  Weight: 46.2669 kg

DRUGS (2)
  1. CANCIDAS [Suspect]
     Indication: INFECTION
     Dosage: 50 MG IV DAILY
     Route: 042
     Dates: start: 20051105, end: 20051116
  2. TYGACIL [Suspect]
     Indication: INFECTION
     Dosage: 50 MG IV Q12H
     Route: 042
     Dates: start: 20051111, end: 20051116

REACTIONS (3)
  - ALANINE AMINOTRANSFERASE INCREASED [None]
  - ASPARTATE AMINOTRANSFERASE INCREASED [None]
  - BLOOD ALKALINE PHOSPHATASE INCREASED [None]
